FAERS Safety Report 24790495 (Version 5)
Quarter: 2025Q4

REPORT INFORMATION
  Report Type: Report from Study
  Country: US (occurrence: US)
  Receive Date: 20241230
  Receipt Date: 20251230
  Transmission Date: 20260118
  Serious: Yes (Other)
  Sender: TAKEDA
  Company Number: US-TAKEDA-2024TUS108536

PATIENT
  Sex: Female
  Weight: 51 kg

DRUGS (23)
  1. HUMAN IMMUNOGLOBULIN G [Suspect]
     Active Substance: HUMAN IMMUNOGLOBULIN G
     Indication: Immunodeficiency common variable
     Dosage: 14 GRAM, Q2WEEKS
  2. ATORVASTATIN CALCIUM [Concomitant]
     Active Substance: ATORVASTATIN CALCIUM
     Dosage: UNK
  3. ALBUTEROL\IPRATROPIUM [Concomitant]
     Active Substance: ALBUTEROL\IPRATROPIUM
     Dosage: UNK
  4. ZYRTEC [Concomitant]
     Active Substance: CETIRIZINE HYDROCHLORIDE
     Dosage: UNK
  5. XARELTO [Concomitant]
     Active Substance: RIVAROXABAN
     Dosage: UNK
  6. VITAMIN E [Concomitant]
     Active Substance: .ALPHA.-TOCOPHEROL
     Dosage: UNK
  7. GUAIFENESIN DM [Concomitant]
     Active Substance: DEXTROMETHORPHAN\DEXTROMETHORPHAN HYDROBROMIDE\GUAIFENESIN
     Dosage: UNK
  8. CALCIUM\CHOLECALCIFEROL [Concomitant]
     Active Substance: CALCIUM\CHOLECALCIFEROL
     Dosage: UNK
  9. METOPROLOL SUCCINATE [Concomitant]
     Active Substance: METOPROLOL SUCCINATE
     Dosage: UNK
  10. ACETYLCYSTEINE [Concomitant]
     Active Substance: ACETYLCYSTEINE
     Dosage: UNK
  11. PFIZER-BIONTECH COVID-19 VACCINE [Concomitant]
     Active Substance: TOZINAMERAN
     Dosage: UNK
  12. MONTELUKAST SODIUM [Concomitant]
     Active Substance: MONTELUKAST SODIUM
     Dosage: UNK
  13. SPIRONOLACTONE [Concomitant]
     Active Substance: SPIRONOLACTONE
     Dosage: UNK
  14. VENTOLIN HFA [Concomitant]
     Active Substance: ALBUTEROL SULFATE
     Dosage: UNK
  15. OXYGEN [Concomitant]
     Active Substance: OXYGEN
     Dosage: UNK
  16. FUROSEMIDE [Concomitant]
     Active Substance: FUROSEMIDE
     Dosage: UNK
  17. LOSARTAN POTASSIUM [Concomitant]
     Active Substance: LOSARTAN POTASSIUM
     Dosage: UNK
  18. MULTAQ [Concomitant]
     Active Substance: DRONEDARONE
     Dosage: UNK
  19. FLUBLOK [Concomitant]
     Active Substance: INFLUENZA VIRUS VACCINE
     Dosage: UNK
  20. EPINEPHRINE [Concomitant]
     Active Substance: EPINEPHRINE
     Dosage: UNK
  21. ACETAMINOPHEN [Concomitant]
     Active Substance: ACETAMINOPHEN
     Dosage: UNK
  22. LIDOCAINE [Concomitant]
     Active Substance: LIDOCAINE
     Dosage: UNK
  23. NUCALA [Concomitant]
     Active Substance: MEPOLIZUMAB
     Dosage: UNK

REACTIONS (9)
  - Nephrolithiasis [Unknown]
  - Hand fracture [Unknown]
  - COVID-19 [Not Recovered/Not Resolved]
  - Stomatitis [Unknown]
  - Infusion site warmth [Unknown]
  - Abdominal distension [Unknown]
  - Infusion site swelling [Unknown]
  - Abdominal pain [Recovered/Resolved]
  - Asthma [Unknown]

NARRATIVE: CASE EVENT DATE: 20241101
